FAERS Safety Report 10497632 (Version 2)
Quarter: 2014Q4

REPORT INFORMATION
  Report Type: Report from Study
  Country: US (occurrence: US)
  Receive Date: 20141006
  Receipt Date: 20141006
  Transmission Date: 20150528
  Serious: Yes (Other)
  Sender: FDA-Public Use
  Company Number: PHEH2014US016301

PATIENT
  Sex: Female
  Weight: 73.92 kg

DRUGS (1)
  1. EXTAVIA [Suspect]
     Active Substance: INTERFERON BETA-1B
     Indication: MULTIPLE SCLEROSIS
     Dosage: 0.25 MG, QOD (FOR 6 MONTH)
     Route: 058

REACTIONS (3)
  - Mood altered [Recovering/Resolving]
  - Drug ineffective [Unknown]
  - Injection site reaction [Unknown]
